FAERS Safety Report 4523965-6 (Version None)
Quarter: 2004Q4

REPORT INFORMATION
  Report Type: 
  Country: None (occurrence: None)
  Receive Date: 20041209
  Receipt Date: 20041122
  Transmission Date: 20050328
  Serious: Yes (Hospitalization)
  Sender: FDA-Public Use
  Company Number: 9348

PATIENT
  Age: 19 Year
  Sex: Female

DRUGS (14)
  1. METHOTREXATE [Suspect]
     Indication: STEM CELL TRANSPLANT
  2. CYCLOSPORINE [Suspect]
     Indication: STEM CELL TRANSPLANT
     Dosage: 1 MG/KG BID
  3. ALEMTUZUMAB [Suspect]
     Indication: STEM CELL TRANSPLANT
  4. CYCLOPHOSPHAMIDE [Suspect]
     Indication: STEM CELL TRANSPLANT
  5. FOLINIC ACID [Concomitant]
  6. CEFTRIAXONE SODIUM [Concomitant]
  7. METRONIDAZOLE [Concomitant]
  8. ALLOPURINOL [Concomitant]
  9. ACYCLOVIR [Concomitant]
  10. CYPROFLOXACIN [Concomitant]
  11. CO-TRIMOXAZOLE [Concomitant]
  12. COLISTIN SULFATE [Concomitant]
  13. ITRACONAZOLE [Concomitant]
  14. AMPHOTERICIN B [Concomitant]

REACTIONS (11)
  - CANDIDA PNEUMONIA [None]
  - COMPLICATIONS OF TRANSPLANT SURGERY [None]
  - DERMATITIS EXFOLIATIVE [None]
  - ENTEROCOCCAL INFECTION [None]
  - FUNGAL SEPSIS [None]
  - FUSARIUM INFECTION [None]
  - LOCAL SWELLING [None]
  - NEUTROPENIA [None]
  - OEDEMA PERIPHERAL [None]
  - PAIN IN EXTREMITY [None]
  - SKIN DESQUAMATION [None]
